FAERS Safety Report 25780705 (Version 1)
Quarter: 2025Q3

REPORT INFORMATION
  Report Type: Report from Study
  Country: US (occurrence: US)
  Receive Date: 20250909
  Receipt Date: 20250909
  Transmission Date: 20251021
  Serious: Yes (Hospitalization)
  Sender: TAKEDA
  Company Number: US-TAKEDA-2024TUS092261

PATIENT
  Sex: Female
  Weight: 93 kg

DRUGS (31)
  1. HUMAN IMMUNOGLOBULIN G [Suspect]
     Active Substance: HUMAN IMMUNOGLOBULIN G
     Indication: Immunodeficiency common variable
     Dosage: 14 GRAM, 1/WEEK
  2. HUMAN IMMUNOGLOBULIN G [Suspect]
     Active Substance: HUMAN IMMUNOGLOBULIN G
     Dosage: 16 GRAM, 1/WEEK
  3. ZYRTEC [Concomitant]
     Active Substance: CETIRIZINE HYDROCHLORIDE
  4. CLARITIN [Concomitant]
     Active Substance: LORATADINE
  5. VITAMIN C [Concomitant]
     Active Substance: ASCORBIC ACID
  6. Omega krill plus [Concomitant]
  7. AZELASTINE HYDROCHLORIDE [Concomitant]
     Active Substance: AZELASTINE HYDROCHLORIDE
  8. EPINEPHRINE [Concomitant]
     Active Substance: EPINEPHRINE
  9. TIZANIDINE HYDROCHLORIDE [Concomitant]
     Active Substance: TIZANIDINE HYDROCHLORIDE
  10. ESOMEPRAZOLE MAGNESIUM [Concomitant]
     Active Substance: ESOMEPRAZOLE MAGNESIUM
  11. IRON [Concomitant]
     Active Substance: IRON
  12. ALBUTEROL SULFATE [Concomitant]
     Active Substance: ALBUTEROL SULFATE
  13. LIDOCAINE [Concomitant]
     Active Substance: LIDOCAINE
  14. PRAZOSIN HYDROCHLORIDE [Concomitant]
     Active Substance: PRAZOSIN HYDROCHLORIDE
  15. Ocean complete [Concomitant]
  16. CALCIUM CARBONATE\CHOLECALCIFEROL [Concomitant]
     Active Substance: CALCIUM CARBONATE\CHOLECALCIFEROL
  17. Cranberry plus vitamin c [Concomitant]
  18. MELATONIN [Concomitant]
     Active Substance: MELATONIN
  19. BENADRYL [Concomitant]
     Active Substance: DIPHENHYDRAMINE HYDROCHLORIDE
  20. BUSPIRONE HCL [Concomitant]
     Active Substance: BUSPIRONE HYDROCHLORIDE
  21. CLONAZEPAM [Concomitant]
     Active Substance: CLONAZEPAM
  22. MONTELUKAST SODIUM [Concomitant]
     Active Substance: MONTELUKAST SODIUM
  23. ZINC [Concomitant]
     Active Substance: ZINC
  24. IBUPROFEN [Concomitant]
     Active Substance: IBUPROFEN
  25. DIPHENHYDRAMINE HYDROCHLORIDE [Concomitant]
     Active Substance: DIPHENHYDRAMINE HYDROCHLORIDE
  26. ONDANSETRON HYDROCHLORIDE [Concomitant]
     Active Substance: ONDANSETRON HYDROCHLORIDE
  27. ADVAIR HFA [Concomitant]
     Active Substance: FLUTICASONE PROPIONATE\SALMETEROL XINAFOATE
  28. METHYLPHENIDATE [Concomitant]
     Active Substance: METHYLPHENIDATE
  29. SUMATRIPTAN SUCCINATE [Concomitant]
     Active Substance: SUMATRIPTAN SUCCINATE
  30. TRAZODONE HCL [Concomitant]
     Active Substance: TRAZODONE HYDROCHLORIDE
  31. ALBUTEROL SULFATE [Concomitant]
     Active Substance: ALBUTEROL SULFATE

REACTIONS (7)
  - Bronchitis [Unknown]
  - Streptococcal infection [Unknown]
  - Nasopharyngitis [Unknown]
  - Infection [Unknown]
  - Cellulitis [Recovering/Resolving]
  - Sinusitis [Recovered/Resolved]
  - Vertigo [Not Recovered/Not Resolved]
